FAERS Safety Report 5466176-2 (Version None)
Quarter: 2007Q3

REPORT INFORMATION
  Report Type: 
  Country: None (occurrence: None)
  Receive Date: 20070924
  Receipt Date: 20070912
  Transmission Date: 20080115
  Serious: Yes (Other)
  Sender: FDA-Public Use
  Company Number: US-PFIZER INC-2007062668

PATIENT
  Sex: Male
  Weight: 102.1 kg

DRUGS (10)
  1. CHANTIX [Suspect]
     Indication: SMOKING CESSATION THERAPY
  2. OXYCONTIN [Concomitant]
  3. OXYBUTYNIN CHLORIDE [Concomitant]
  4. OXYCODONE HCL [Concomitant]
  5. TOPROL-XL [Concomitant]
  6. ISOSORBIDE DINITRATE [Concomitant]
  7. METFORMIN [Concomitant]
  8. CILOSTAZOL [Concomitant]
  9. VYTORIN [Concomitant]
  10. PHENMETRAZINE [Concomitant]

REACTIONS (3)
  - DIZZINESS [None]
  - FALL [None]
  - LIMB INJURY [None]
